FAERS Safety Report 13994081 (Version 1)
Quarter: 2017Q3

REPORT INFORMATION
  Report Type: Spontaneous
  Country: GB (occurrence: GB)
  Receive Date: 20170920
  Receipt Date: 20170920
  Transmission Date: 20171128
  Serious: Yes (Other)
  Sender: FDA-Public Use
  Company Number: GB-MYLANLABS-2017M1057015

PATIENT
  Age: 59 Year
  Sex: Male
  Weight: 83 kg

DRUGS (30)
  1. SALBUTAMOL [Concomitant]
     Active Substance: ALBUTEROL
     Dates: start: 20170411
  2. SERTRALINE [Concomitant]
     Active Substance: SERTRALINE HYDROCHLORIDE
     Dates: start: 20170411
  3. FLUCONAZOLE. [Concomitant]
     Active Substance: FLUCONAZOLE
     Dosage: AS DIRECTED.
     Dates: start: 20170809, end: 20170813
  4. VITAMIN B [Concomitant]
     Active Substance: VITAMIN B
     Dates: start: 20170411
  5. LANSOPRAZOLE. [Concomitant]
     Active Substance: LANSOPRAZOLE
     Dates: start: 20170411
  6. ATORVASTATIN [Concomitant]
     Active Substance: ATORVASTATIN
     Dosage: AT NIGHT.
     Dates: start: 20170411
  7. FLUCLOXACILLIN [Concomitant]
     Active Substance: FLUCLOXACILLIN
     Dates: start: 20170814, end: 20170821
  8. GLICLAZIDE [Concomitant]
     Active Substance: GLICLAZIDE
     Dosage: ONE IN THE MORNING, TWO IN THE EVENING.
     Dates: start: 20170411
  9. NASEPTIN [Concomitant]
     Active Substance: CHLORHEXIDINE HYDROCHLORIDE\NEOMYCIN SULFATE
     Dosage: FOR ONE MONTH
     Dates: start: 20170814
  10. PARACETAMOL [Concomitant]
     Active Substance: ACETAMINOPHEN
     Dosage: FOUR TIMES A DAY.
     Dates: start: 20170411
  11. PREGABALIN. [Concomitant]
     Active Substance: PREGABALIN
     Dates: start: 20170411
  12. SENNA                              /00142201/ [Concomitant]
     Active Substance: SENNA LEAF
     Dosage: AT NIGHT.
     Dates: start: 20170411
  13. ZOPICLONE [Concomitant]
     Active Substance: ZOPICLONE
     Dosage: AT NIGHT FOR SHORT TERM ...
     Dates: start: 20170612, end: 20170619
  14. AMOXICILLIN. [Concomitant]
     Active Substance: AMOXICILLIN
     Dates: start: 20170713, end: 20170720
  15. DAPAGLIFLOZIN. [Concomitant]
     Active Substance: DAPAGLIFLOZIN
     Dates: start: 20170411
  16. LIRAGLUTIDE [Concomitant]
     Active Substance: LIRAGLUTIDE
     Dosage: AS ADVISED BY SPECIALIST.
     Dates: start: 20170411
  17. TAMSULOSIN [Suspect]
     Active Substance: TAMSULOSIN
     Indication: PRODUCT USED FOR UNKNOWN INDICATION
     Dates: start: 20170809
  18. CIALIS [Concomitant]
     Active Substance: TADALAFIL
     Dosage: TAKE AT LEAST 30 MINUTES BEFORE SEXUAL ACTIVITY...
     Dates: start: 20170411
  19. DERMOL                             /01330701/ [Concomitant]
     Dosage: USE AS DIRECTED.
     Dates: start: 20170809
  20. FOSTAIR [Concomitant]
     Active Substance: BECLOMETHASONE\FORMOTEROL
     Dates: start: 20170411
  21. LANTUS [Concomitant]
     Active Substance: INSULIN GLARGINE
     Dosage: 34 UNITS AT NIGHT OR 36 UNITS IF EATING CURRY O...
     Dates: start: 20170411
  22. TRAMADOL. [Concomitant]
     Active Substance: TRAMADOL
     Dosage: FOUR TIMES DAILY.
     Dates: start: 20170320
  23. VITAMINS NOS [Concomitant]
     Active Substance: VITAMINS
     Dates: start: 20170411
  24. LOPERAMIDE [Concomitant]
     Active Substance: LOPERAMIDE
     Dosage: USE AS DIRECTED.
     Dates: start: 20170411
  25. ASPIRIN                            /00002701/ [Concomitant]
     Active Substance: ASPIRIN
     Dates: start: 20170411
  26. CHLORHEXIDINE GLUCONATE. [Concomitant]
     Active Substance: CHLORHEXIDINE GLUCONATE
     Dosage: USE AS DIRECTED.
     Dates: start: 20170809
  27. FUSIDIC ACID [Concomitant]
     Active Substance: FUSIDIC ACID
     Dosage: 3-4 TIMES/DAY AS DIRECTED.
     Dates: start: 20170809
  28. LISINOPRIL. [Concomitant]
     Active Substance: LISINOPRIL
     Dates: start: 20170411
  29. METRONIDAZOLE. [Concomitant]
     Active Substance: METRONIDAZOLE
     Dosage: FOR FOUR WEEKS
     Dates: start: 20170411
  30. PHENOXYMETHYLPENICILLIN [Concomitant]
     Active Substance: PENICILLIN V
     Dates: start: 20170411

REACTIONS (2)
  - Hypoglycaemia [Recovered/Resolved]
  - Diarrhoea [Recovered/Resolved]

NARRATIVE: CASE EVENT DATE: 20170814
